FAERS Safety Report 8281776-2 (Version None)
Quarter: 2012Q2

REPORT INFORMATION
  Report Type: 
  Country: None (occurrence: None)
  Receive Date: 20120413
  Receipt Date: 20120405
  Transmission Date: 20120825
  Serious: Yes (Hospitalization)
  Sender: FDA-Public Use
  Company Number: FR-JNJFOC-20120405431

PATIENT
  Sex: Female

DRUGS (7)
  1. VALSARTAN [Concomitant]
     Route: 048
  2. ABILIFY [Concomitant]
     Route: 048
  3. ACETAMINOPHEN [Concomitant]
     Route: 048
     Dates: start: 20111108, end: 20111130
  4. KETOPROFEN [Concomitant]
     Route: 048
     Dates: start: 20111108, end: 20111123
  5. XARELTO [Suspect]
     Indication: KNEE ARTHROPLASTY
     Route: 048
     Dates: start: 20111104, end: 20111122
  6. XARELTO [Suspect]
     Indication: THROMBOSIS PROPHYLAXIS
     Route: 048
     Dates: start: 20111104, end: 20111122
  7. ANAFRANIL [Concomitant]
     Route: 048

REACTIONS (1)
  - DEEP VEIN THROMBOSIS [None]
